FAERS Safety Report 18310665 (Version 2)
Quarter: 2020Q4

REPORT INFORMATION
  Report Type: Report from Study
  Country: US (occurrence: US)
  Receive Date: 20200925
  Receipt Date: 20201202
  Transmission Date: 20210113
  Serious: Yes (Disabling)
  Sender: FDA-Public Use
  Company Number: US-KYOWAKIRIN-2020BKK015266

PATIENT

DRUGS (3)
  1. NOURIANZ [Suspect]
     Active Substance: ISTRADEFYLLINE
     Dosage: 20 MG, QD
     Route: 065
     Dates: start: 202008, end: 20200901
  2. NOURIANZ [Suspect]
     Active Substance: ISTRADEFYLLINE
     Indication: PARKINSON^S DISEASE
     Dosage: 10 MG (HALF TABLET)
     Route: 065
     Dates: start: 20200727, end: 202008
  3. CARBIDOPA/LEVODOPA [Concomitant]
     Active Substance: CARBIDOPA\LEVODOPA
     Indication: PARKINSON^S DISEASE
     Dosage: 63 ML/HR, 20 TABLETS OF 25-100 MG DISSOLVED IN LITER OF WATER
     Route: 065
     Dates: start: 2006

REACTIONS (4)
  - On and off phenomenon [Recovering/Resolving]
  - Drug interaction [Recovered/Resolved]
  - Depressed mood [Recovered/Resolved]
  - Wrong technique in product usage process [Recovered/Resolved]

NARRATIVE: CASE EVENT DATE: 20200727
